FAERS Safety Report 9891336 (Version 1)
Quarter: 2014Q1

REPORT INFORMATION
  Report Type: Report from Study
  Country: US (occurrence: US)
  Receive Date: 20140212
  Receipt Date: 20140212
  Transmission Date: 20141002
  Serious: No
  Sender: FDA-Public Use
  Company Number: US-ABBVIE-13P-163-1090773-00

PATIENT
  Sex: Male

DRUGS (5)
  1. NORVIR [Suspect]
     Indication: PRODUCT USED FOR UNKNOWN INDICATION
     Route: 048
     Dates: start: 2002
  2. ZIAGEN [Concomitant]
     Indication: PRODUCT USED FOR UNKNOWN INDICATION
  3. PREZISTA [Concomitant]
     Indication: PRODUCT USED FOR UNKNOWN INDICATION
  4. INTELENCE [Concomitant]
     Indication: PRODUCT USED FOR UNKNOWN INDICATION
  5. UNKNOWN OTC SUPPLEMENTS [Concomitant]
     Indication: PRODUCT USED FOR UNKNOWN INDICATION

REACTIONS (1)
  - Blood disorder [Unknown]
